FAERS Safety Report 9883758 (Version 4)
Quarter: 2014Q2

REPORT INFORMATION
  Report Type: Spontaneous
  Country: US (occurrence: US)
  Receive Date: 20140210
  Receipt Date: 20140627
  Transmission Date: 20141212
  Serious: No
  Sender: FDA-Public Use
  Company Number: US-009507513-1402USA003114

PATIENT
  Age: 20 Year
  Sex: Female
  Weight: 110.2 kg

DRUGS (1)
  1. IMPLANON [Suspect]
     Indication: CONTRACEPTION
     Dosage: 1 ROD, STRENGTH 68 (UNIT NOT PROVIDED)
     Route: 059
     Dates: start: 20110315

REACTIONS (3)
  - Weight increased [Not Recovered/Not Resolved]
  - Medical device complication [Not Recovered/Not Resolved]
  - Incorrect drug administration duration [Unknown]
